FAERS Safety Report 21001897 (Version 1)
Quarter: 2022Q2

REPORT INFORMATION
  Report Type: Report from Study
  Country: US (occurrence: US)
  Receive Date: 20220624
  Receipt Date: 20220624
  Transmission Date: 20220721
  Serious: Yes (Other)
  Sender: FDA-Public Use
  Company Number: US-ABBVIE-22K-163-4443869-00

PATIENT
  Age: 68 Year
  Sex: Female

DRUGS (10)
  1. RINVOQ [Suspect]
     Active Substance: UPADACITINIB
     Indication: Rheumatoid arthritis
     Dosage: TAKE 1 TABLET BY MOUTH DAILY
     Route: 048
  2. AMLODIPINE B TAB 10MG, (NON-ABBVIE) [Concomitant]
     Indication: Product used for unknown indication
  3. CITRACAL MAX TAB 315-250M, (NON-ABBVIE) [Concomitant]
     Indication: Product used for unknown indication
  4. COMPLETE WOM TAB (NON-ABBVIE) [Concomitant]
     Indication: Product used for unknown indication
  5. LEVOTHYROXIN TAB 25MCG, (NON-ABBVIE) [Concomitant]
     Indication: Product used for unknown indication
  6. METOPROLOL S TB2 200MG (NON-ABBVIE) [Concomitant]
     Indication: Product used for unknown indication
  7. PROLLA SOS 60MG/ML, (NON-ABBVIE) [Concomitant]
     Indication: Product used for unknown indication
  8. QUINAPRIL HC TAB 20MG, (NON-ABBVIE) [Concomitant]
     Indication: Product used for unknown indication
  9. ROSUVASTATIN TAB 20MG (NON-ABBVIE) [Concomitant]
     Indication: Product used for unknown indication
  10. TRAMADOL HCL TAB 50MG (NON-ABBVIE) [Concomitant]
     Indication: Product used for unknown indication

REACTIONS (1)
  - Skin cancer [Not Recovered/Not Resolved]

NARRATIVE: CASE EVENT DATE: 20220224
